FAERS Safety Report 13652368 (Version 1)
Quarter: 2017Q2

REPORT INFORMATION
  Report Type: Report from Study
  Country: ES (occurrence: ES)
  Receive Date: 20170614
  Receipt Date: 20170614
  Transmission Date: 20170830
  Serious: Yes (Hospitalization)
  Sender: FDA-Public Use
  Company Number: ES-SA-2017SA104537

PATIENT
  Sex: Male

DRUGS (7)
  1. EMCONCOR COR [Interacting]
     Active Substance: BISOPROLOL
     Dosage: 1-0-0
     Route: 048
     Dates: start: 2016
  2. APROVEL [Suspect]
     Active Substance: IRBESARTAN
     Indication: CARDIAC FAILURE
     Dosage: 1/2-0-0
     Route: 048
     Dates: start: 2016, end: 20170217
  3. HIGROTONA [Interacting]
     Active Substance: CHLORTHALIDONE
     Indication: CARDIAC FAILURE
     Dosage: 1-0-1
     Route: 048
     Dates: start: 2016, end: 20170217
  4. OMNIC OCAS [Interacting]
     Active Substance: TAMSULOSIN HYDROCHLORIDE
     Dosage: 1-0-0?PROLONGED-RELEASE TABLETS
     Route: 065
     Dates: start: 2016
  5. CARDYL [Concomitant]
     Active Substance: ATORVASTATIN CALCIUM
     Dosage: 0-0-1
     Route: 065
     Dates: start: 2016
  6. CARDURAN NEO [Interacting]
     Active Substance: DOXAZOSIN MESYLATE
     Indication: CARDIAC FAILURE
     Route: 048
     Dates: start: 2016, end: 20170217
  7. PRADAXA [Concomitant]
     Active Substance: DABIGATRAN ETEXILATE MESYLATE
     Dosage: 1-0-1
     Route: 065
     Dates: start: 2016

REACTIONS (3)
  - Drug interaction [Recovering/Resolving]
  - Head injury [Recovered/Resolved]
  - Presyncope [Recovering/Resolving]

NARRATIVE: CASE EVENT DATE: 20170217
